FAERS Safety Report 14586009 (Version 1)
Quarter: 2018Q1

REPORT INFORMATION
  Report Type: Spontaneous
  Country: US (occurrence: US)
  Receive Date: 20180228
  Receipt Date: 20180228
  Transmission Date: 20180509
  Serious: Yes (Hospitalization)
  Sender: FDA-Public Use
  Company Number: None

PATIENT
  Age: 71 Year
  Sex: Male

DRUGS (12)
  1. ACTEMRA [Suspect]
     Active Substance: TOCILIZUMAB
     Indication: TEMPORAL ARTERITIS
     Dosage: 162MG/0.9ML WEEKLY, SUBCUTANEOUSLY
     Route: 058
  2. ROSUVASTATIN. [Concomitant]
     Active Substance: ROSUVASTATIN
  3. BUDESONIDE. [Concomitant]
     Active Substance: BUDESONIDE
  4. AMLODIPINE [Concomitant]
     Active Substance: AMLODIPINE BESYLATE
  5. BUPROPN [Concomitant]
  6. BOSULIF [Suspect]
     Active Substance: BOSUTINIB MONOHYDRATE
     Indication: TEMPORAL ARTERITIS
     Route: 048
     Dates: start: 20180209
  7. RAMIPRIL. [Concomitant]
     Active Substance: RAMIPRIL
  8. PANTOPRAZOLE [Concomitant]
     Active Substance: PANTOPRAZOLE
  9. LOSARTAN. [Concomitant]
     Active Substance: LOSARTAN
  10. PRENISONE 10MG ROXANE LABS [Concomitant]
     Active Substance: PREDNISONE
  11. WARFARIN [Concomitant]
     Active Substance: WARFARIN
  12. CARVEDILOL. [Concomitant]
     Active Substance: CARVEDILOL

REACTIONS (1)
  - Pneumonia [None]
